FAERS Safety Report 9434803 (Version 1)
Quarter: 2013Q3

REPORT INFORMATION
  Report Type: Spontaneous
  Country: US (occurrence: US)
  Receive Date: 20130801
  Receipt Date: 20130801
  Transmission Date: 20140515
  Serious: Yes (Other)
  Sender: FDA-Public Use
  Company Number: US-PFIZER INC-2013223518

PATIENT
  Age: 63 Year
  Sex: Female
  Weight: 67.12 kg

DRUGS (6)
  1. LYRICA [Suspect]
     Indication: FIBROMYALGIA
     Dosage: 100 MG, 1X/DAY
     Route: 048
     Dates: start: 2007
  2. LYRICA [Suspect]
     Dosage: 600 MG, 1X/DAY
     Route: 048
     Dates: end: 201307
  3. NORVASC [Concomitant]
     Indication: HYPERTENSION
     Dosage: UNK
  4. TOPROL XL [Concomitant]
     Indication: HYPERTENSION
     Dosage: UNK
  5. PREVACID [Concomitant]
     Dosage: UNK
  6. PROAIR HFA [Concomitant]
     Indication: ASTHMA
     Dosage: UNK

REACTIONS (12)
  - Drug withdrawal syndrome [Unknown]
  - Angina pectoris [Unknown]
  - Chest pain [Unknown]
  - Tachycardia [Unknown]
  - Muscle spasms [Unknown]
  - Pain [Unknown]
  - Headache [Unknown]
  - Hypokalaemia [Unknown]
  - Nervous system disorder [Unknown]
  - Neuralgia [Unknown]
  - Formication [Unknown]
  - Hepatic enzyme increased [Unknown]
